FAERS Safety Report 23832286 (Version 1)
Quarter: 2024Q2

REPORT INFORMATION
  Report Type: Spontaneous
  Country: US (occurrence: None)
  Receive Date: 20240507
  Receipt Date: 20240507
  Transmission Date: 20240716
  Serious: No
  Sender: FDA-Public Use
  Company Number: None

PATIENT
  Sex: Female

DRUGS (3)
  1. PROGRAF [Suspect]
     Active Substance: TACROLIMUS
     Indication: Renal transplant
     Dosage: 2.5 MG BID PO
     Route: 048
     Dates: start: 20240329
  2. MYCOPHENOLIC ACID DR [Concomitant]
  3. DIFLUCAN [Concomitant]

REACTIONS (1)
  - Kidney transplant rejection [None]
